FAERS Safety Report 11153106 (Version 1)
Quarter: 2015Q2

REPORT INFORMATION
  Report Type: Spontaneous
  Country: US (occurrence: US)
  Receive Date: 20150601
  Receipt Date: 20150601
  Transmission Date: 20150821
  Serious: Yes (Other)
  Sender: FDA-Public Use
  Company Number: US-GLAXOSMITHKLINE-US2015073304

PATIENT
  Age: 82 Year
  Sex: Male

DRUGS (3)
  1. ASPIRIN. [Concomitant]
     Active Substance: ASPIRIN
  2. SORIATANE [Suspect]
     Active Substance: ACITRETIN
     Indication: ECZEMA
     Dosage: 25 MG, QD
     Route: 048
     Dates: start: 2012
  3. SORIATANE [Suspect]
     Active Substance: ACITRETIN
     Indication: DERMATOSIS

REACTIONS (3)
  - Vision blurred [Recovering/Resolving]
  - Cataract operation [Recovering/Resolving]
  - Visual impairment [Recovering/Resolving]

NARRATIVE: CASE EVENT DATE: 201410
